FAERS Safety Report 5033369-8 (Version None)
Quarter: 2006Q2

REPORT INFORMATION
  Report Type: 
  Country: None (occurrence: None)
  Receive Date: 20060620
  Receipt Date: 20060607
  Transmission Date: 20061013
  Serious: Yes (Hospitalization)
  Sender: FDA-Public Use
  Company Number: 2006073161

PATIENT
  Age: 75 Year
  Sex: Female
  Weight: 56 kg

DRUGS (4)
  1. SUTENT [Suspect]
     Indication: HEPATIC NEOPLASM MALIGNANT
     Dosage: 50 MG (50 MG, OD-INTERVAL: EVERY DAY), ORAL
     Route: 048
     Dates: start: 20060529, end: 20060606
  2. PRETERAX (INDAPAMIDE, PERINODPRIL ERBUMINE) [Concomitant]
  3. SMECTITE (SMECTITE) [Concomitant]
  4. PRIMPERAN TAB [Concomitant]

REACTIONS (3)
  - ASTHENIA [None]
  - LOSS OF CONSCIOUSNESS [None]
  - MALAISE [None]
